FAERS Safety Report 7329708-5 (Version None)
Quarter: 2011Q1

REPORT INFORMATION
  Report Type: 
  Country: None (occurrence: None)
  Receive Date: 20110303
  Receipt Date: 20110205
  Transmission Date: 20110831
  Serious: No
  Sender: FDA-Public Use
  Company Number: US-B.I. PHARMACEUTICALS,INC./RIDGEFIELD-2011-BP-03812BP

PATIENT
  Sex: Female

DRUGS (10)
  1. ASPIRIN [Concomitant]
     Indication: AORTIC STENOSIS
     Route: 048
     Dates: start: 19850101
  2. ZYRTEC [Concomitant]
     Indication: HYPERSENSITIVITY
     Dosage: 10 MG
     Route: 048
     Dates: start: 20101101
  3. GABAPENTIN [Concomitant]
     Indication: RESTLESS LEGS SYNDROME
     Dosage: 100 MG
     Route: 048
     Dates: start: 20060101
  4. SYMBICORT [Concomitant]
     Indication: HYPERSENSITIVITY
     Dosage: 2 PUF
     Route: 055
     Dates: start: 20100101
  5. PRADAXA [Suspect]
     Indication: ATRIAL FIBRILLATION
     Dosage: 300 MG
     Route: 048
     Dates: start: 20110114
  6. ALLERGY SHOTS [Concomitant]
     Indication: HYPERSENSITIVITY
     Route: 030
     Dates: start: 19830101
  7. FLUTICASONE [Concomitant]
     Indication: HYPERSENSITIVITY
     Dosage: 2 PUF
     Route: 045
     Dates: start: 20101101
  8. SYNTHROID [Concomitant]
     Indication: HYPOTHYROIDISM
     Dosage: 100 MCG
     Route: 048
     Dates: start: 19600101
  9. DILTIAZEM HCL ER [Concomitant]
     Indication: HYPERTENSION
     Dosage: 180 MG
     Route: 048
     Dates: start: 20090101
  10. DIOVAN HCT [Concomitant]
     Indication: HYPERTENSION
     Route: 048
     Dates: start: 20060101

REACTIONS (3)
  - HYPERSOMNIA [None]
  - SOMNOLENCE [None]
  - FATIGUE [None]
